FAERS Safety Report 17936528 (Version 1)
Quarter: 2020Q2

REPORT INFORMATION
  Report Type: Spontaneous
  Country: DE (occurrence: DE)
  Receive Date: 20200624
  Receipt Date: 20200624
  Transmission Date: 20200714
  Serious: Yes (Hospitalization)
  Sender: FDA-Public Use
  Company Number: DE-TEVA-2020-DE-1790463

PATIENT
  Age: 50 Year
  Sex: Female

DRUGS (8)
  1. PREDNISOLON [Suspect]
     Active Substance: PREDNISOLONE
     Route: 065
  2. VINCRISTIN [Suspect]
     Active Substance: VINCRISTINE
     Route: 065
  3. ETOPOSID [Suspect]
     Active Substance: ETOPOSIDE
     Route: 065
  4. CYCLOPHOSPHAMID [Suspect]
     Active Substance: CYCLOPHOSPHAMIDE
     Route: 065
  5. ADRIAMYCIN [Suspect]
     Active Substance: DOXORUBICIN HYDROCHLORIDE
     Route: 065
  6. PROCARBAZIN [Suspect]
     Active Substance: PROCARBAZINE
     Route: 065
  7. LEVOTHYROXIN-NATRIUM [Concomitant]
     Active Substance: LEVOTHYROXINE SODIUM
     Dosage: 75 MICROGRAM
  8. BLEOMYCIN [Suspect]
     Active Substance: BLEOMYCIN SULFATE
     Route: 065

REACTIONS (1)
  - Vaginal haemorrhage [Unknown]

NARRATIVE: CASE EVENT DATE: 20200404
